FAERS Safety Report 16462072 (Version 2)
Quarter: 2019Q2

REPORT INFORMATION
  Report Type: Report from Study
  Country: JP (occurrence: JP)
  Receive Date: 20190621
  Receipt Date: 20190626
  Transmission Date: 20190711
  Serious: Yes (Hospitalization)
  Sender: FDA-Public Use
  Company Number: JP-BRISTOL-MYERS SQUIBB COMPANY-BMS-2019-058852

PATIENT
  Age: 62 Year
  Sex: Male
  Weight: 79 kg

DRUGS (2)
  1. NIVOLUMAB [Suspect]
     Active Substance: NIVOLUMAB
     Indication: MALIGNANT MELANOMA
     Dosage: 1 DOSAGE FORM - 80 MG/BODY
     Route: 041
     Dates: start: 20181226, end: 20190225
  2. IPILIMUMAB [Suspect]
     Active Substance: IPILIMUMAB
     Indication: MALIGNANT MELANOMA
     Dosage: 3 MILLIGRAM/KILOGRAM
     Route: 041
     Dates: start: 20181226, end: 20190225

REACTIONS (1)
  - C-reactive protein increased [Recovered/Resolved]

NARRATIVE: CASE EVENT DATE: 20190118
